FAERS Safety Report 18228484 (Version 1)
Quarter: 2020Q3

REPORT INFORMATION
  Report Type: Spontaneous
  Country: NL (occurrence: DE)
  Receive Date: 20200903
  Receipt Date: 20200903
  Transmission Date: 20201103
  Serious: Yes (Other)
  Sender: FDA-Public Use
  Company Number: DE-FRESENIUS KABI-FK202008857

PATIENT
  Age: 68 Year
  Sex: Male

DRUGS (4)
  1. PEMBROLIZUMAB. [Suspect]
     Active Substance: PEMBROLIZUMAB
     Dosage: 200MG, D1, EVERY 3 WEEKS, CUMULATIVE DOSE TO FIRST REACTION: 1135.678 MG
     Route: 065
     Dates: start: 20190731, end: 20200214
  2. PACLITAXEL ALBUMIN [Suspect]
     Active Substance: PACLITAXEL
     Indication: NON-SMALL CELL LUNG CANCER
     Dosage: 100MG/M2, D1, D8, D15, EVERY 3 WEEKS,?CUMULATIVE DOSE TO FIRST REACTION: 567.839 MG/M2
     Route: 065
     Dates: start: 20190731, end: 20200214
  3. CARBOPLATIN (MANUFACTURER UNKNOWN) [Suspect]
     Active Substance: CARBOPLATIN
     Indication: NON-SMALL CELL LUNG CANCER
     Dosage: AUC5, D1, EVERY 3 WEEKS
     Route: 065
     Dates: start: 20190731, end: 20200214
  4. PEMBROLIZUMAB. [Suspect]
     Active Substance: PEMBROLIZUMAB
     Indication: NON-SMALL CELL LUNG CANCER
     Dosage: THIRD CYCLE; CUMULATIVE DOSE TO FIRST REACTION: 1135.678 MG
     Route: 065
     Dates: start: 20200103

REACTIONS (5)
  - Malignant neoplasm progression [Unknown]
  - Dermatitis [Recovered/Resolved]
  - Alopecia [Recovered/Resolved]
  - Epistaxis [Recovered/Resolved]
  - Peroneal nerve palsy [Recovered/Resolved]

NARRATIVE: CASE EVENT DATE: 20190822
